FAERS Safety Report 6495533-0 (Version None)
Quarter: 2009Q4

REPORT INFORMATION
  Report Type: 
  Country: None (occurrence: None)
  Receive Date: 20091214
  Receipt Date: 20090708
  Transmission Date: 20100525
  Serious: No
  Sender: FDA-Public Use
  Company Number: US-BRISTOL-MYERS SQUIBB COMPANY-14695118

PATIENT
  Age: 40 Year
  Sex: Male

DRUGS (2)
  1. ABILIFY [Suspect]
     Dosage: 10MG/DAY ABOUT 7 WEEKS AGO, DOSE REDUCED TO 5MG.
  2. ANTIDEPRESSANT [Concomitant]

REACTIONS (1)
  - TARDIVE DYSKINESIA [None]
